FAERS Safety Report 6783501-0 (Version None)
Quarter: 2010Q2

REPORT INFORMATION
  Report Type: 
  Country: None (occurrence: None)
  Receive Date: 20100622
  Receipt Date: 20100609
  Transmission Date: 20101027
  Serious: Yes (Hospitalization, Other)
  Sender: FDA-Public Use
  Company Number: PHHY2010BR37981

PATIENT
  Sex: Female

DRUGS (2)
  1. EXFORGE [Suspect]
     Dosage: UNK
  2. ENALAPRIL MALEATE [Concomitant]
     Dosage: 20 MG, UNK

REACTIONS (2)
  - FRACTURE [None]
  - HYPERTENSION [None]
